FAERS Safety Report 9816367 (Version 2)
Quarter: 2014Q1

REPORT INFORMATION
  Report Type: Spontaneous
  Country: US (occurrence: US)
  Receive Date: 20140114
  Receipt Date: 20140114
  Transmission Date: 20141002
  Serious: Yes (Other)
  Sender: FDA-Public Use
  Company Number: US-ASTRAZENECA-2014SE00769

PATIENT
  Age: 29 Year
  Sex: Male
  Weight: 80.7 kg

DRUGS (6)
  1. SEROQUEL [Suspect]
     Indication: SCHIZOPHRENIA
     Route: 048
  2. UNSPECIFIED [Suspect]
     Route: 065
  3. OXAZEPAM [Concomitant]
     Route: 048
  4. OLANZAPINE [Concomitant]
     Dosage: 15 MG
     Route: 048
  5. GABAPENTIN [Concomitant]
     Route: 048
  6. L TRYPTOPHAN [Concomitant]
     Dosage: 500 MG X 2 PRN
     Route: 048

REACTIONS (14)
  - Suicidal ideation [Unknown]
  - Speech disorder [Unknown]
  - Memory impairment [Unknown]
  - Feeling abnormal [Unknown]
  - Learning disorder [Unknown]
  - Speech disorder [Unknown]
  - Binge eating [Unknown]
  - Logorrhoea [Unknown]
  - Flight of ideas [Unknown]
  - Adverse event [Unknown]
  - Toxicity to various agents [Unknown]
  - Amnesia [Unknown]
  - Hypersomnia [Unknown]
  - Off label use [Unknown]
